FAERS Safety Report 22399882 (Version 1)
Quarter: 2023Q2

REPORT INFORMATION
  Report Type: Spontaneous
  Country: CO (occurrence: CO)
  Receive Date: 20230602
  Receipt Date: 20230602
  Transmission Date: 20230721
  Serious: Yes (Other)
  Sender: FDA-Public Use
  Company Number: CO-JNJFOC-20230573020

PATIENT
  Age: 31 Year
  Sex: Male
  Weight: 62 kg

DRUGS (1)
  1. RISPERDAL [Suspect]
     Active Substance: RISPERIDONE
     Indication: Schizoaffective disorder
     Route: 048

REACTIONS (2)
  - Epilepsy [Not Recovered/Not Resolved]
  - Dysphagia [Not Recovered/Not Resolved]
